FAERS Safety Report 17000867 (Version 1)
Quarter: 2019Q4

REPORT INFORMATION
  Report Type: Spontaneous
  Country: US (occurrence: US)
  Receive Date: 20191106
  Receipt Date: 20191106
  Transmission Date: 20200122
  Serious: No
  Sender: FDA-Public Use
  Company Number: US-SA-2019SA301632

PATIENT
  Age: 47 Year
  Sex: Female

DRUGS (2)
  1. KEVZARA [Suspect]
     Active Substance: SARILUMAB
     Indication: RHEUMATOID ARTHRITIS
     Dosage: 200 MG, QOW
     Route: 058
     Dates: start: 20190821
  2. KEVZARA [Suspect]
     Active Substance: SARILUMAB
     Indication: FIBROMYALGIA

REACTIONS (2)
  - Injection site pruritus [Recovered/Resolved]
  - Product use in unapproved indication [Unknown]
